FAERS Safety Report 8522592-3 (Version None)
Quarter: 2012Q3

REPORT INFORMATION
  Report Type: 
  Country: None (occurrence: None)
  Receive Date: 20120719
  Receipt Date: 20120713
  Transmission Date: 20120928
  Serious: Yes (Hospitalization, Disabling, Other)
  Sender: FDA-Public Use
  Company Number: US-MSD-1103USA00837

PATIENT

DRUGS (15)
  1. FOSAMAX [Suspect]
     Route: 048
     Dates: start: 20080201
  2. FOSAMAX [Suspect]
     Dosage: 70 MG, UNK
     Route: 048
     Dates: start: 20080301, end: 20100101
  3. PREMPRO [Concomitant]
  4. CALCIUM (UNSPECIFIED) [Concomitant]
     Indication: OSTEOPENIA
     Dosage: 500 MG, QD
     Dates: start: 20070101
  5. MAGNESIUM (UNSPECIFIED) [Concomitant]
     Dosage: 250 MG, QD
     Dates: start: 20070101
  6. ALENDRONATE SODIUM [Suspect]
     Dosage: 70 MG, UNK
     Dates: start: 20080820, end: 20091209
  7. CHANTIX [Concomitant]
  8. HORMONES (UNSPECIFIED) [Concomitant]
     Dates: start: 19900101, end: 20090401
  9. LIPITOR [Concomitant]
     Dosage: 10 MG, QD
  10. OMEGA-3 MARINE TRIGLYCERIDES [Concomitant]
     Dosage: 1200 MG, QD
     Dates: start: 20070101
  11. FOSAMAX [Suspect]
     Indication: OSTEOPENIA
     Dosage: 70 MG, UNK
     Route: 048
     Dates: start: 20050201, end: 20080301
  12. LISINOPRIL AND HYDROCHLOROTHIAZIDE [Concomitant]
  13. CHONDROITIN SULFATE SODIUM (+) GLUCOSAMINE SULFATE [Concomitant]
  14. MK-9278 [Concomitant]
     Dosage: UNK UNK, QD
     Dates: start: 20070101
  15. ASPIRIN CALCIUM [Concomitant]

REACTIONS (34)
  - FRACTURE [None]
  - OSTEOARTHRITIS [None]
  - BREAST DISORDER [None]
  - LOW TURNOVER OSTEOPATHY [None]
  - FEMUR FRACTURE [None]
  - CHRONIC SINUSITIS [None]
  - GALLBLADDER DISORDER [None]
  - COUGH [None]
  - HERPES ZOSTER [None]
  - POST HERPETIC NEURALGIA [None]
  - ANXIETY [None]
  - TYMPANIC MEMBRANE PERFORATION [None]
  - DRUG INEFFECTIVE [None]
  - PELVIC PROLAPSE [None]
  - BREAST CANCER [None]
  - BURSITIS [None]
  - FOREIGN BODY [None]
  - REFLUX LARYNGITIS [None]
  - DIVERTICULUM [None]
  - ARTHRALGIA [None]
  - OTITIS MEDIA ACUTE [None]
  - BACK PAIN [None]
  - CONDUCTIVE DEAFNESS [None]
  - VITAMIN D DEFICIENCY [None]
  - PYURIA [None]
  - ADVERSE EVENT [None]
  - DRY EYE [None]
  - GOITRE [None]
  - LUNG NEOPLASM [None]
  - RENAL CYST [None]
  - ADVERSE DRUG REACTION [None]
  - SYNOVIAL CYST [None]
  - CATARACT [None]
  - VASCULAR CALCIFICATION [None]
